FAERS Safety Report 9890978 (Version 1)
Quarter: 2014Q1

REPORT INFORMATION
  Report Type: Spontaneous
  Country: FR (occurrence: FR)
  Receive Date: 20140212
  Receipt Date: 20140212
  Transmission Date: 20141002
  Serious: Yes (Other)
  Sender: FDA-Public Use
  Company Number: FR-009507513-1402FRA000611

PATIENT
  Age: 31 Year
  Sex: Female
  Weight: 67 kg

DRUGS (1)
  1. PUREGON [Suspect]
     Indication: OVARIAN HYPERSTIMULATION SYNDROME
     Dosage: UNK
     Route: 058
     Dates: start: 201310

REACTIONS (1)
  - Epilepsy [Recovered/Resolved]
